FAERS Safety Report 22761404 (Version 3)
Quarter: 2023Q4

REPORT INFORMATION
  Report Type: Spontaneous
  Country: US (occurrence: US)
  Receive Date: 20230728
  Receipt Date: 20231207
  Transmission Date: 20240110
  Serious: Yes (Life-Threatening, Hospitalization, Other)
  Sender: FDA-Public Use
  Company Number: US-PFIZER INC-PV202300128840

PATIENT
  Age: 57 Year
  Sex: Male
  Weight: 140.61 kg

DRUGS (6)
  1. BRAFTOVI [Suspect]
     Active Substance: ENCORAFENIB
     Indication: Neoplasm malignant
     Dosage: 75 MG
     Route: 048
  2. BRAFTOVI [Suspect]
     Active Substance: ENCORAFENIB
     Dosage: 450 MG, DAILY
     Route: 048
  3. MEKTOVI [Suspect]
     Active Substance: BINIMETINIB
     Dosage: 15 MG
  4. MEKTOVI [Suspect]
     Active Substance: BINIMETINIB
     Dosage: 90 MG, DAILY
  5. INSULIN NOS [Concomitant]
     Active Substance: INSULIN NOS
     Dosage: UNK
  6. FARXIGA [Concomitant]
     Active Substance: DAPAGLIFLOZIN PROPANEDIOL
     Dosage: UNK

REACTIONS (9)
  - Influenza [Unknown]
  - Spinal fracture [Unknown]
  - Lymphadenectomy [Unknown]
  - Blindness unilateral [Unknown]
  - Eye haemorrhage [Unknown]
  - Blood glucose increased [Unknown]
  - Brain fog [Unknown]
  - Vision blurred [Unknown]
  - Eyelid margin crusting [Unknown]
